FAERS Safety Report 21046039 (Version 11)
Quarter: 2022Q4

REPORT INFORMATION
  Report Type: Spontaneous
  Country: GB (occurrence: GB)
  Receive Date: 20220706
  Receipt Date: 20221117
  Transmission Date: 20230113
  Serious: Yes (Other)
  Sender: FDA-Public Use
  Company Number: None

PATIENT
  Sex: Male

DRUGS (41)
  1. IRON [Suspect]
     Active Substance: IRON
     Indication: Anaemia
     Route: 048
  2. IRON [Suspect]
     Active Substance: IRON
     Dosage: 420 MG, QD (210 MG, BID)
     Route: 048
  3. MIRTAZAPINE [Suspect]
     Active Substance: MIRTAZAPINE
     Indication: Product used for unknown indication
     Dosage: 30 MILLIGRAM, DAILY AT NIGHT
     Route: 048
  4. FOLIC ACID [Suspect]
     Active Substance: FOLIC ACID
     Indication: Folate deficiency
     Dosage: 5 MILLIGRAM, DAILY,MORNING
     Route: 048
  5. FOLIC ACID [Suspect]
     Active Substance: FOLIC ACID
     Dosage: 5 MILLIGRAM, QD, MORNING
     Route: 048
  6. FOLIC ACID [Suspect]
     Active Substance: FOLIC ACID
     Dosage: UNK
     Route: 048
  7. ESCITALOPRAM [Suspect]
     Active Substance: ESCITALOPRAM OXALATE
     Indication: Product used for unknown indication
     Dosage: 10 MILLIGRAM, DAILY,MORNING
     Route: 048
  8. DIHYDROCODEINE [Suspect]
     Active Substance: DIHYDROCODEINE
     Indication: Pain
     Dosage: TWO TO BE TAKEN FOUR TIMES A DAY IF REQUIRED, AS NECESSARY
     Route: 048
  9. DIHYDROCODEINE [Suspect]
     Active Substance: DIHYDROCODEINE
     Dosage: 2 DF, Q6H, AS NECESSARY, TWO TO BE TAKEN 4 TIMES/DAY IF REQUIRED. RECEIVED 60 MG DOSE.
     Route: 048
  10. DIHYDROCODEINE [Suspect]
     Active Substance: DIHYDROCODEINE
     Dosage: 240 MG, Q6H, FOUR TIMES DAILY. WITH OR JUST AFTER FOOD/MEAL
     Route: 048
  11. DIHYDROCODEINE [Suspect]
     Active Substance: DIHYDROCODEINE
     Dosage: 60 MILLIGRAM, ONCE A DAY/FOUR TIMES DAILY. WITH OR JUST AFTER FOOD/MEAL60 MG, Q6H TWO TO BE TAKEN
     Route: 048
  12. DIHYDROCODEINE [Suspect]
     Active Substance: DIHYDROCODEINE
     Dosage: 240 MILLIGRAM, Q6H, 240 MG, Q6H, FOUR TIMES DAILY. WITH OR JUST AFTER FOOD/MEAL60 MILLIGRAM, FOUR T
     Route: 048
  13. DIHYDROCODEINE [Suspect]
     Active Substance: DIHYDROCODEINE
     Dosage: FOUR TIMES DAILY. WITH OR JUST AFTER FOOD/MEAL
     Route: 048
  14. DIHYDROCODEINE [Suspect]
     Active Substance: DIHYDROCODEINE
     Dosage: 60 MILLIGRAM, FOUR TIMES DAILY.WITH OR JUST AFTER FOOD/MEAL, ASNECESSARY 60 MG, PRN; AS NECESSARY 6
     Route: 048
  15. DIHYDROCODEINE [Suspect]
     Active Substance: DIHYDROCODEINE
     Dosage: 60 MG, Q6HR (TWO TO BE TAKEN FOUR TIMES A DAY IF REQUIRED.)
     Route: 065
  16. AZATHIOPRINE [Suspect]
     Active Substance: AZATHIOPRINE
     Indication: Colitis
     Dosage: 25 MG, QD (MORNING, LUNCH AND TEA TIME)
     Route: 048
  17. AZATHIOPRINE [Suspect]
     Active Substance: AZATHIOPRINE
     Dosage: 75 MILLIGRAM,QD,WITH OR JUST AFTER FOOD/ MORNING, LUNCH AND TEA TIME (WITH OR JUST AFTER FOOD/MEAL)
     Route: 048
  18. AZATHIOPRINE [Suspect]
     Active Substance: AZATHIOPRINE
     Dosage: 25 MG, QD (MORNING, LUNCH AND TEA TIME)
     Route: 048
  19. AZATHIOPRINE [Suspect]
     Active Substance: AZATHIOPRINE
     Dosage: 25 MG, Q8HR, MORNING, LUNCH AND TEA TIME (WITH OR JUST AFTER FOOD/MEAL)/25 MG, DAILY MORNING, LUNCH
     Route: 048
  20. AZATHIOPRINE [Suspect]
     Active Substance: AZATHIOPRINE
     Dosage: 75 MILLIGRAM, DAILY,WITH OR JUST AFTER FOOD/ MORNING, LUNCH ANDTEA TIME (WITH OR JUST AFTER FOOD/MEA
     Route: 048
  21. PROMETHAZINE HYDROCHLORIDE [Suspect]
     Active Substance: PROMETHAZINE HYDROCHLORIDE
     Indication: Product used for unknown indication
     Dosage: 25 MG, DAILY, AT NIGHT.
     Route: 048
  22. OLANZAPINE [Suspect]
     Active Substance: OLANZAPINE
     Indication: Product used for unknown indication
     Route: 048
  23. OLANZAPINE [Suspect]
     Active Substance: OLANZAPINE
     Dosage: 10 MILLIGRAM, QD (10 UNK)10 MILLIGRAM, QD PRN
     Route: 048
  24. OLANZAPINE [Suspect]
     Active Substance: OLANZAPINE
     Dosage: PRN
     Route: 048
  25. OLANZAPINE [Suspect]
     Active Substance: OLANZAPINE
     Route: 048
  26. FERROUS FUMARATE [Suspect]
     Active Substance: FERROUS FUMARATE
     Indication: Anaemia
     Dosage: 840 MILLIGRAM, ONCE A DAY
     Route: 048
  27. FERROUS FUMARATE [Suspect]
     Active Substance: FERROUS FUMARATE
     Dosage: 210 MG, BID (MORNING AND NIGHT)
     Route: 048
  28. FERROUS FUMARATE [Suspect]
     Active Substance: FERROUS FUMARATE
     Dosage: 420 MG PER DAY,MORNING AND NIGHT
     Route: 048
  29. FERROUS FUMARATE [Suspect]
     Active Substance: FERROUS FUMARATE
     Dosage: 420 MILLIGRAM, ONCE A DAY(MORNING AND NIGHT)
     Route: 048
  30. FERROUS FUMARATE [Suspect]
     Active Substance: FERROUS FUMARATE
     Dosage: 210 MILLIGRAM, ONCE A DAY, MORNING AND NIGHT
     Route: 048
  31. DIHYDROCODEINE BITARTRATE [Suspect]
     Active Substance: DIHYDROCODEINE BITARTRATE
     Indication: Pain
     Dosage: FOUR TIMES DAILY.WITH OR JUST AFTER FOOD/MEAL
     Route: 048
  32. DIHYDROCODEINE BITARTRATE [Suspect]
     Active Substance: DIHYDROCODEINE BITARTRATE
     Dosage: 8 DOSAGE FORM, QD, 2 DOSAGE FORM, AS NECESSARY,TWO TO BE TAKEN FOUR TIMES A DAY IF REQUIRED.
  33. DIHYDROCODEINE BITARTRATE [Suspect]
     Active Substance: DIHYDROCODEINE BITARTRATE
     Indication: Pain
     Dosage: ONCE A DAY
     Route: 048
  34. DIHYDROCODEINE BITARTRATE [Suspect]
     Active Substance: DIHYDROCODEINE BITARTRATE
     Dosage: FOUR TIMES DAILY. WITH OR JUST AFTER FOOD/MEAL
  35. DIHYDROCODEINE BITARTRATE [Suspect]
     Active Substance: DIHYDROCODEINE BITARTRATE
     Dosage: 8 DOSAGE FORM, QD, 2 DOSAGE FORM, AS NECESSARY, TWO TO BE TAKEN FOUR TIMES A DAY IF REQUIRED.
     Route: 048
  36. DIHYDROCODEINE BITARTRATE [Suspect]
     Active Substance: DIHYDROCODEINE BITARTRATE
     Dosage: 2 DOSAGE FORM, PRN (2 DOSAGE FORM, AS NECESSARY,TWO TO BE TAKEN FOUR TIMES
     Route: 048
  37. DIHYDROCODEINE BITARTRATE [Suspect]
     Active Substance: DIHYDROCODEINE BITARTRATE
     Dosage: QID (FOUR TIMES DAILY. WITH OR JUST AFTER FOOD/MEAL)
     Route: 048
  38. DIHYDROCODEINE BITARTRATE [Suspect]
     Active Substance: DIHYDROCODEINE BITARTRATE
     Dosage: QID, FOUR TIMES DAILY. WITH OR JUST AFTER FOOD/MEAL
     Route: 048
  39. DIHYDROCODEINE BITARTRATE [Suspect]
     Active Substance: DIHYDROCODEINE BITARTRATE
     Dosage: ONCE A DAY/ FOUR TIMES DAILY. WITH OR JUST AFTER FOOD
     Route: 048
  40. PROMETHAZINE [Suspect]
     Active Substance: PROMETHAZINE HYDROCHLORIDE
     Indication: Product used for unknown indication
     Dosage: QD, AT NIGHT
     Route: 048
  41. DIHYDROCODEINE BITARTRATE [Suspect]
     Active Substance: DIHYDROCODEINE BITARTRATE
     Indication: Pain
     Dosage: 8 DOSAGE FORM, QD,  DOSAGE FORM, AS NECESSARY, TWO TO BE TAKEN FOUR TIMES A DAY IF REQUIRED.
     Route: 065

REACTIONS (3)
  - Seizure [Unknown]
  - Autoscopy [Unknown]
  - Overdose [Unknown]
